FAERS Safety Report 14892893 (Version 1)
Quarter: 2018Q2

REPORT INFORMATION
  Report Type: Spontaneous
  Country: FR (occurrence: FR)
  Receive Date: 20180514
  Receipt Date: 20180514
  Transmission Date: 20180711
  Serious: Yes (Other)
  Sender: FDA-Public Use
  Company Number: FR-MYLANLABS-2018M1031119

PATIENT
  Age: 21 Year
  Sex: Female

DRUGS (10)
  1. DOXORUBICIN [Suspect]
     Active Substance: DOXORUBICIN
     Indication: PRODUCT USED FOR UNKNOWN INDICATION
     Dosage: FOURTH COURSE, TWO WEEKS LATER DELIVERY
     Route: 042
  2. MORPHINE [Suspect]
     Active Substance: MORPHINE
     Indication: PREMEDICATION
     Route: 048
  3. DOXORUBICIN [Suspect]
     Active Substance: DOXORUBICIN
     Dosage: 3 COURSES OF THREE WEEKLY IN THE 27TH, 30TH, AND 33RD WEEK OF GESTATION
     Route: 042
  4. ETOPOSIDE. [Concomitant]
     Active Substance: ETOPOSIDE
     Indication: EWING^S SARCOMA
     Route: 042
  5. G-CSF [Concomitant]
     Active Substance: GRANULOCYTE COLONY-STIMULATING FACTOR NOS
     Indication: PROPHYLAXIS
     Route: 065
  6. MESNA. [Suspect]
     Active Substance: MESNA
     Dosage: FOURTH COURSE, TWO WEEKS LATER DELIVERY
     Route: 042
  7. GRANISETRON [Suspect]
     Active Substance: GRANISETRON
     Indication: VOMITING
  8. MESNA. [Suspect]
     Active Substance: MESNA
     Indication: PRODUCT USED FOR UNKNOWN INDICATION
     Dosage: 3 COURSES OF THREE WEEKLY IN THE 27TH, 30TH, AND 33RD WEEK OF GESTATION
     Route: 042
  9. HOLOXAN [Suspect]
     Active Substance: IFOSFAMIDE
     Indication: EWING^S SARCOMA
     Dosage: (ADR-IFX), 3 COURSES OF THREE WEEKLY IN THE 27TH, 30TH, AND 33RD WEEK OF GESTATION
     Route: 042
  10. HOLOXAN [Suspect]
     Active Substance: IFOSFAMIDE
     Dosage: (ADRIFX), FOURTH COURSE, TWO WEEKS LATER DELIVERY

REACTIONS (3)
  - Neutropenia [Unknown]
  - Exposure during pregnancy [Recovered/Resolved]
  - Febrile neutropenia [Unknown]
